FAERS Safety Report 24062601 (Version 1)
Quarter: 2024Q3

REPORT INFORMATION
  Report Type: Spontaneous
  Country: CA (occurrence: CA)
  Receive Date: 20240708
  Receipt Date: 20240708
  Transmission Date: 20241017
  Serious: Yes (Other)
  Sender: ACERUS PHARMACEUTICALS
  Company Number: CA-ACERUSPHRM-2024-CA-000450

PATIENT
  Age: 45 Year
  Sex: Male

DRUGS (10)
  1. TESTOSTERONE [Suspect]
     Active Substance: TESTOSTERONE
     Indication: Product used for unknown indication
  2. VITAMIN D NOS [Concomitant]
     Active Substance: CHOLECALCIFEROL\ERGOCALCIFEROL
     Indication: Product used for unknown indication
  3. LANREOTIDE ACETATE [Suspect]
     Active Substance: LANREOTIDE ACETATE
     Indication: Acromegaly
     Route: 058
  4. CALCIUM [Concomitant]
     Active Substance: CALCIUM
     Indication: Product used for unknown indication
  5. CANDESARTAN [Concomitant]
     Active Substance: CANDESARTAN
     Indication: Product used for unknown indication
  6. DOXOFYLLINE [Concomitant]
     Active Substance: DOXOFYLLINE
     Indication: Product used for unknown indication
  7. FLUVOXAMINE [Concomitant]
     Active Substance: FLUVOXAMINE
     Indication: Product used for unknown indication
  8. METFORMIN [Concomitant]
     Active Substance: METFORMIN HYDROCHLORIDE
     Indication: Product used for unknown indication
  9. pancreatic enzyme [Concomitant]
     Indication: Product used for unknown indication
  10. SANDOSTATIN [Concomitant]
     Active Substance: OCTREOTIDE ACETATE
     Indication: Product used for unknown indication

REACTIONS (16)
  - Headache [Unknown]
  - Hypoaesthesia [Unknown]
  - Malaise [Unknown]
  - Off label use [Not Recovered/Not Resolved]
  - Red blood cell count increased [Unknown]
  - Swelling [Unknown]
  - Therapeutic product effect incomplete [Unknown]
  - Vitamin D decreased [Unknown]
  - Abdominal pain [Not Recovered/Not Resolved]
  - Blood calcium decreased [Not Recovered/Not Resolved]
  - Blood pressure increased [Unknown]
  - Diarrhoea [Unknown]
  - Dizziness [Unknown]
  - Ear infection [Unknown]
  - Fatigue [Unknown]
  - Haemoglobin increased [Unknown]
